FAERS Safety Report 23615987 (Version 7)
Quarter: 2025Q1

REPORT INFORMATION
  Report Type: Report from Study
  Country: US (occurrence: US)
  Receive Date: 20240311
  Receipt Date: 20250124
  Transmission Date: 20250409
  Serious: Yes (Disabling, Other)
  Sender: AMGEN
  Company Number: US-HORIZON THERAPEUTICS-HZN-2022-000986

PATIENT
  Age: 53 Year
  Sex: Male

DRUGS (16)
  1. TEPEZZA [Suspect]
     Active Substance: TEPROTUMUMAB-TRBW
     Indication: Endocrine ophthalmopathy
     Route: 042
     Dates: start: 20211103, end: 20211103
  2. TEPEZZA [Suspect]
     Active Substance: TEPROTUMUMAB-TRBW
     Dosage: 1900 MILLIGRAM, Q3WK (SECOND INFUSION)
     Route: 042
     Dates: start: 20211124
  3. TEPEZZA [Suspect]
     Active Substance: TEPROTUMUMAB-TRBW
     Dosage: 1900 MILLIGRAM, Q3WK (THIRD INFUSION)
     Route: 042
     Dates: start: 20211215
  4. TEPEZZA [Suspect]
     Active Substance: TEPROTUMUMAB-TRBW
     Dosage: 1900 MILLIGRAM, Q3WK (FOURTH INFUSION)
     Route: 042
     Dates: start: 20220111
  5. TEPEZZA [Suspect]
     Active Substance: TEPROTUMUMAB-TRBW
     Dosage: 1900 MILLIGRAM, Q3WK (FIFTH INFUSION)
     Route: 042
     Dates: start: 20220202
  6. TEPEZZA [Suspect]
     Active Substance: TEPROTUMUMAB-TRBW
     Dosage: 1900 MILLIGRAM, Q3WK (FIFTH INFUSION)
     Route: 042
     Dates: start: 20220202
  7. TEPEZZA [Suspect]
     Active Substance: TEPROTUMUMAB-TRBW
     Dosage: 1900 MILLIGRAM, Q3WK (SIXTH INFUSION)
     Route: 042
     Dates: start: 20220223
  8. TEPEZZA [Suspect]
     Active Substance: TEPROTUMUMAB-TRBW
     Dosage: 1900 MILLIGRAM, Q3WK (SIXTH INFUSION)
     Route: 042
     Dates: start: 20220223
  9. PREDNISONE [Suspect]
     Active Substance: PREDNISONE
     Indication: Visual field defect
     Dosage: 60 MILLIGRAM, QD ( TAPERED OFF) (20 MG TAKE 3 TABLETS BY ORAL ROUTE EVERYDAY)
     Route: 048
  10. LISINOPRIL [Concomitant]
     Active Substance: LISINOPRIL
     Dosage: 10 MILLIGRAM, QD
     Route: 065
  11. LISINOPRIL [Concomitant]
     Active Substance: LISINOPRIL
     Route: 065
  12. PREDNISONE [Concomitant]
     Active Substance: PREDNISONE
     Dosage: 60 MILLIGRAM, TID
     Route: 065
  13. FISH OIL [Concomitant]
     Active Substance: FISH OIL
     Dosage: 435 MILLIGRAM, QD
     Route: 048
  14. LEVOTHYROXINE SODIUM [Concomitant]
     Active Substance: LEVOTHYROXINE SODIUM
     Dosage: 150 MICROGRAM, QD
     Route: 065
     Dates: start: 20220720
  15. METHIMAZOLE [Concomitant]
     Active Substance: METHIMAZOLE
     Route: 065
  16. MAXITROL [Concomitant]
     Active Substance: DEXAMETHASONE\NEOMYCIN SULFATE\POLYMYXIN B SULFATE
     Dosage: UNK, BID (UNGT OS)
     Route: 047

REACTIONS (27)
  - Deafness neurosensory [Not Recovered/Not Resolved]
  - Deafness permanent [Not Recovered/Not Resolved]
  - Exophthalmos [Unknown]
  - Physical disability [Not Recovered/Not Resolved]
  - Weight increased [Unknown]
  - Pain [Not Recovered/Not Resolved]
  - Injury [Not Recovered/Not Resolved]
  - Anxiety [Not Recovered/Not Resolved]
  - Emotional distress [Not Recovered/Not Resolved]
  - Impaired quality of life [Not Recovered/Not Resolved]
  - Hypoacusis [Not Recovered/Not Resolved]
  - Tinnitus [Not Recovered/Not Resolved]
  - Muscle spasms [Unknown]
  - Arthralgia [Recovered/Resolved]
  - Product quality issue [Unknown]
  - Dry skin [Unknown]
  - Dry eye [Unknown]
  - Fatigue [Unknown]
  - Weight decreased [Unknown]
  - Diplopia [Not Recovered/Not Resolved]
  - Post procedural hypothyroidism [Unknown]
  - Economic problem [Not Recovered/Not Resolved]
  - Photophobia [Unknown]
  - Product selection error [Unknown]
  - Incision site swelling [Unknown]
  - Lacrimation increased [Unknown]
  - Visual field defect [Unknown]

NARRATIVE: CASE EVENT DATE: 20211101
